FAERS Safety Report 21933494 (Version 1)
Quarter: 2023Q1

REPORT INFORMATION
  Report Type: Report from Study
  Country: US (occurrence: US)
  Receive Date: 20230201
  Receipt Date: 20230201
  Transmission Date: 20230418
  Serious: Yes (Hospitalization)
  Sender: FDA-Public Use
  Company Number: US-JNJFOC-20230152710

PATIENT
  Age: 34 Year
  Sex: Female

DRUGS (1)
  1. SPRAVATO [Suspect]
     Active Substance: ESKETAMINE
     Indication: Depression
     Dosage: 84 MG, 8 TOTAL DOSES
     Dates: start: 20221227, end: 20230126

REACTIONS (2)
  - Hospitalisation [Unknown]
  - Sleep disorder [Unknown]

NARRATIVE: CASE EVENT DATE: 20230101
